FAERS Safety Report 23228876 (Version 1)
Quarter: 2023Q4

REPORT INFORMATION
  Report Type: Other
  Country: US (occurrence: None)
  Receive Date: 20231126
  Receipt Date: 20231126
  Transmission Date: 20240110
  Serious: No
  Sender: FDA-Public Use
  Company Number: US-ROCHE-3367706

PATIENT
  Age: 62 Year
  Sex: Male

DRUGS (18)
  1. TRASTUZUMAB [Suspect]
     Active Substance: TRASTUZUMAB
     Indication: HER2 positive colorectal cancer
     Route: 042
  2. TRASTUZUMAB [Suspect]
     Active Substance: TRASTUZUMAB
     Indication: Colorectal cancer metastatic
  3. LAPATINIB [Suspect]
     Active Substance: LAPATINIB
     Indication: HER2 positive colorectal cancer
     Route: 048
  4. LAPATINIB [Suspect]
     Active Substance: LAPATINIB
     Indication: Colorectal cancer metastatic
  5. CAPECITABINE [Concomitant]
     Active Substance: CAPECITABINE
     Indication: HER2 positive colorectal cancer
     Route: 048
     Dates: start: 201810
  6. CAPECITABINE [Concomitant]
     Active Substance: CAPECITABINE
     Indication: Colorectal cancer metastatic
     Dosage: 625 MG/M2, ON MONDAYS-FRIDAYS.
     Route: 048
  7. FLOXURIDINE [Concomitant]
     Active Substance: FLOXURIDINE
     Indication: HER2 positive colorectal cancer
     Dosage: TOTAL DOSE OF FUDR WAS 0.12 MG/KG/DAY
  8. FLOXURIDINE [Concomitant]
     Active Substance: FLOXURIDINE
     Indication: Colorectal cancer metastatic
  9. DEXAMETHASONE [Concomitant]
     Active Substance: DEXAMETHASONE
     Indication: HER2 positive colorectal cancer
  10. DEXAMETHASONE [Concomitant]
     Active Substance: DEXAMETHASONE
     Indication: Colorectal cancer metastatic
  11. HEPARIN [Concomitant]
     Active Substance: HEPARIN SODIUM
     Indication: HER2 positive colorectal cancer
     Dosage: 25000 UNITS
  12. HEPARIN [Concomitant]
     Active Substance: HEPARIN SODIUM
     Indication: Colorectal cancer metastatic
  13. FLUOROURACIL [Concomitant]
     Active Substance: FLUOROURACIL
     Indication: HER2 positive colorectal cancer
     Dates: start: 201905
  14. FLUOROURACIL [Concomitant]
     Active Substance: FLUOROURACIL
     Indication: Colorectal cancer metastatic
     Dosage: OVER 46 HOUR
     Route: 042
  15. IRINOTECAN [Concomitant]
     Active Substance: IRINOTECAN
     Indication: HER2 positive colorectal cancer
     Dates: start: 201905
  16. IRINOTECAN [Concomitant]
     Active Substance: IRINOTECAN
     Indication: Colorectal cancer metastatic
     Route: 042
  17. LEUCOVORIN [Concomitant]
     Active Substance: LEUCOVORIN\LEUCOVORIN CALCIUM
     Indication: HER2 positive colorectal cancer
     Dates: start: 201905
  18. LEUCOVORIN [Concomitant]
     Active Substance: LEUCOVORIN\LEUCOVORIN CALCIUM
     Indication: Colorectal cancer metastatic
     Route: 042

REACTIONS (2)
  - Disease progression [Unknown]
  - Drug ineffective [Unknown]
